FAERS Safety Report 5680648-7 (Version None)
Quarter: 2008Q1

REPORT INFORMATION
  Report Type: 
  Country: None (occurrence: None)
  Receive Date: 20080326
  Receipt Date: 20080201
  Transmission Date: 20080703
  Serious: No
  Sender: FDA-Public Use
  Company Number: A0706903A

PATIENT
  Age: 76 Year
  Sex: Female

DRUGS (4)
  1. FLOVENT [Suspect]
     Route: 055
  2. XANAX [Concomitant]
  3. EFFEXOR XR [Concomitant]
  4. CARTIA XT [Concomitant]

REACTIONS (2)
  - PRURITUS [None]
  - RASH [None]
